FAERS Safety Report 4304624-1 (Version None)
Quarter: 2004Q1

REPORT INFORMATION
  Report Type: 
  Country: None (occurrence: None)
  Receive Date: 20040226
  Receipt Date: 20031104
  Transmission Date: 20041129
  Serious: No
  Sender: FDA-Public Use
  Company Number: US-GLAXOSMITHKLINE-A0432864A

PATIENT
  Sex: Female

DRUGS (2)
  1. WELLBUTRIN [Suspect]
     Dates: start: 20031031
  2. LIPITOR [Suspect]
     Dates: start: 20031031

REACTIONS (4)
  - ANXIETY [None]
  - DRUG INTERACTION [None]
  - HEART RATE INCREASED [None]
  - HYPERVENTILATION [None]
